FAERS Safety Report 6628204 (Version 2)
Quarter: 2013Q1

REPORT INFORMATION
  Report Type: Spontaneous
  Country: FR (occurrence: FR)
  Receive Date: 20080429
  Receipt Date: 20130314
  Transmission Date: 20140127
  Serious: Yes (Life-Threatening, Hospitalization)
  Sender: FDA-Public Use
  Company Number: FR-PFIZER INC-2008035510

PATIENT
  Age: 71 Year
  Sex: Male

DRUGS (3)
  1. LYRICA [Suspect]
     Indication: NEURALGIA
     Dosage: UNK
     Route: 048
     Dates: start: 20071004, end: 20071009
  2. TRAMADOL AND ACETAMINOPHEN [Suspect]
     Indication: NEURALGIA
     Dosage: UNK
     Route: 048
     Dates: start: 20071004
  3. XATRAL [Concomitant]
     Dosage: UNK
     Route: 048

REACTIONS (7)
  - Agranulocytosis [Recovered/Resolved]
  - Thrombocytopenia [Recovered/Resolved]
  - Febrile neutropenia [None]
  - Skin necrosis [None]
  - Waldenstrom^s macroglobulinaemia [None]
  - Condition aggravated [None]
  - Sepsis [None]
